FAERS Safety Report 8583024-2 (Version None)
Quarter: 2012Q3

REPORT INFORMATION
  Report Type: 
  Country: None (occurrence: None)
  Receive Date: 20120809
  Receipt Date: 20120730
  Transmission Date: 20120928
  Serious: No
  Sender: FDA-Public Use
  Company Number: US-ASTRAZENECA-2012SE53954

PATIENT
  Age: 68 Year
  Sex: Male
  Weight: 95.3 kg

DRUGS (2)
  1. BENICAR [Concomitant]
  2. CRESTOR [Suspect]
     Indication: BLOOD CHOLESTEROL
     Route: 048
     Dates: start: 20111001

REACTIONS (6)
  - MUSCULAR WEAKNESS [None]
  - GAIT DISTURBANCE [None]
  - ADVERSE DRUG REACTION [None]
  - MUSCLE TIGHTNESS [None]
  - ASTHENIA [None]
  - PARAESTHESIA [None]
